FAERS Safety Report 6172670-1 (Version None)
Quarter: 2009Q2

REPORT INFORMATION
  Report Type: 
  Country: None (occurrence: None)
  Receive Date: 20090430
  Receipt Date: 20090415
  Transmission Date: 20091009
  Serious: Yes (Life-Threatening)
  Sender: FDA-Public Use
  Company Number: US-JNJFOC-20090403744

PATIENT
  Sex: Female

DRUGS (2)
  1. TYLENOL SINUS SEVERE CONGESTION COOL BURST [Suspect]
     Indication: SINUS DISORDER
  2. TYLENOL SINUS SEVERE CONGESTION COOL BURST [Suspect]
     Indication: HYPERSENSITIVITY

REACTIONS (5)
  - DYSPNOEA [None]
  - HEART RATE IRREGULAR [None]
  - HYPERSENSITIVITY [None]
  - THROAT TIGHTNESS [None]
  - URTICARIA [None]
